FAERS Safety Report 6244938-1 (Version None)
Quarter: 2009Q2

REPORT INFORMATION
  Report Type: 
  Country: None (occurrence: None)
  Receive Date: 20090625
  Receipt Date: 20090617
  Transmission Date: 20091009
  Serious: Yes (Other)
  Sender: FDA-Public Use
  Company Number: PHEH2008US07466

PATIENT
  Sex: Female

DRUGS (3)
  1. ZOMETA [Suspect]
  2. THALIDOMIDE [Concomitant]
  3. DEXAMETHASONE [Concomitant]

REACTIONS (5)
  - ANXIETY [None]
  - GENERAL PHYSICAL HEALTH DETERIORATION [None]
  - OSTEONECROSIS [None]
  - PAIN [None]
  - PHARYNGITIS [None]
